FAERS Safety Report 11301345 (Version 1)
Quarter: 2015Q2

REPORT INFORMATION
  Report Type: Spontaneous
  Country: US (occurrence: None)
  Receive Date: 20150626
  Receipt Date: 20150626
  Transmission Date: 20150821
  Serious: No
  Sender: FDA-Public Use
  Company Number: 1000075901

PATIENT
  Age: 83 Year
  Sex: Female

DRUGS (1)
  1. LINZESS [Suspect]
     Active Substance: LINACLOTIDE
     Indication: IRRITABLE BOWEL SYNDROME
     Dates: start: 20150408, end: 20150408

REACTIONS (3)
  - Diarrhoea [None]
  - Muscle spasms [None]
  - Dizziness [None]

NARRATIVE: CASE EVENT DATE: 20150408
